FAERS Safety Report 18755327 (Version 2)
Quarter: 2021Q2

REPORT INFORMATION
  Report Type: Spontaneous
  Country: US (occurrence: US)
  Receive Date: 20210119
  Receipt Date: 20210415
  Transmission Date: 20210717
  Serious: Yes (Hospitalization)
  Sender: FDA-Public Use
  Company Number: PK-ENDO PHARMACEUTICALS INC-2021-000094

PATIENT
  Age: 82 Year
  Sex: Female

DRUGS (1)
  1. HYDRALAZINE HYDROCHLORIDE. [Suspect]
     Active Substance: HYDRALAZINE HYDROCHLORIDE
     Indication: PRODUCT USED FOR UNKNOWN INDICATION
     Dosage: UNK UNKNOWN, UNKNOWN
     Route: 065

REACTIONS (2)
  - Glomerulonephritis rapidly progressive [Unknown]
  - Anti-neutrophil cytoplasmic antibody positive vasculitis [Unknown]
